FAERS Safety Report 9055143 (Version 1)
Quarter: 2013Q1

REPORT INFORMATION
  Report Type: Spontaneous
  Country: BR (occurrence: BR)
  Receive Date: 20130206
  Receipt Date: 20130206
  Transmission Date: 20140127
  Serious: Yes (Other)
  Sender: FDA-Public Use
  Company Number: BR-SANOFI-AVENTIS-2013SA007263

PATIENT
  Sex: Male
  Weight: 3.54 kg

DRUGS (2)
  1. CLEXANE [Suspect]
     Indication: FOETAL EXPOSURE TIMING UNSPECIFIED
     Route: 064
  2. AAS INFANTIL [Suspect]
     Indication: FOETAL EXPOSURE TIMING UNSPECIFIED
     Route: 064

REACTIONS (4)
  - Umbilical cord around neck [Recovered/Resolved]
  - Cyanosis neonatal [Recovered/Resolved]
  - Loss of consciousness [Recovered/Resolved]
  - Foetal exposure during pregnancy [Recovered/Resolved]
